FAERS Safety Report 7902480-3 (Version None)
Quarter: 2011Q4

REPORT INFORMATION
  Report Type: 
  Country: None (occurrence: None)
  Receive Date: 20111108
  Receipt Date: 20100409
  Transmission Date: 20120403
  Serious: No
  Sender: FDA-Public Use
  Company Number: US-BAYER-201020633NA

PATIENT
  Sex: Female

DRUGS (2)
  1. ESTRADIOL [Suspect]
  2. CLIMARA [Suspect]
     Route: 062

REACTIONS (2)
  - APPLICATION SITE RASH [None]
  - PRODUCT ADHESION ISSUE [None]
